FAERS Safety Report 4743785-7 (Version None)
Quarter: 2005Q3

REPORT INFORMATION
  Report Type: 
  Country: None (occurrence: None)
  Receive Date: 20050812
  Receipt Date: 20050618
  Transmission Date: 20060218
  Serious: Yes (Other)
  Sender: FDA-Public Use
  Company Number: 200517118GDDC

PATIENT
  Age: 73 Year
  Sex: Male

DRUGS (13)
  1. LANTUS [Suspect]
     Indication: DIABETES MELLITUS
     Route: 058
  2. SPIRONOLACTONE [Suspect]
     Route: 048
     Dates: start: 20050501
  3. NOVORAPID [Concomitant]
     Indication: DIABETES MELLITUS
     Dosage: FREQUENCY: BEFORE MEALS; DOSE UNIT: UNITS
     Route: 058
  4. DIURETICS [Concomitant]
  5. ASPIRIN [Concomitant]
  6. ISOSORBIDE MONONITRATE [Concomitant]
  7. LOSARTAN [Concomitant]
  8. BISOPROLOL FUMARATE [Concomitant]
  9. DIGOXIN [Concomitant]
  10. BUMETANIDE [Concomitant]
  11. WARFARIN [Concomitant]
  12. GABAPENTIN [Concomitant]
  13. ATORVASTATIN CALCIUM [Concomitant]

REACTIONS (1)
  - BLOOD GLUCOSE INCREASED [None]
